FAERS Safety Report 6262224-0 (Version None)
Quarter: 2009Q3

REPORT INFORMATION
  Report Type: 
  Country: None (occurrence: None)
  Receive Date: 20090709
  Receipt Date: 20090629
  Transmission Date: 20100115
  Serious: Yes (Hospitalization)
  Sender: FDA-Public Use
  Company Number: IT-ASTRAZENECA-2009SE01800

PATIENT
  Age: 24478 Day
  Sex: Male

DRUGS (2)
  1. MERREM [Suspect]
     Indication: PSEUDOMONAS INFECTION
     Route: 042
     Dates: start: 20090320, end: 20090403
  2. VANCOMICINA [Suspect]
     Indication: WOUND INFECTION STAPHYLOCOCCAL
     Route: 042
     Dates: start: 20090327, end: 20090403

REACTIONS (3)
  - BLISTER [None]
  - ERYTHEMA [None]
  - SKIN EXFOLIATION [None]
